FAERS Safety Report 23409873 (Version 1)
Quarter: 2024Q1

REPORT INFORMATION
  Report Type: Spontaneous
  Country: CN (occurrence: CN)
  Receive Date: 20240117
  Receipt Date: 20240117
  Transmission Date: 20240409
  Serious: Yes (Life-Threatening)
  Sender: FDA-Public Use
  Company Number: CN-BAYER-2024A009823

PATIENT
  Age: 75 Year
  Sex: Male
  Weight: 75 kg

DRUGS (1)
  1. GADOBUTROL [Suspect]
     Active Substance: GADOBUTROL
     Indication: Magnetic resonance imaging
     Dosage: 7.5 ML, ONCE
     Route: 042
     Dates: start: 20240110, end: 20240110

REACTIONS (4)
  - Tachypnoea [Recovering/Resolving]
  - Rash papular [Recovering/Resolving]
  - Respiratory rate increased [Recovering/Resolving]
  - Pulse abnormal [None]

NARRATIVE: CASE EVENT DATE: 20240110
